FAERS Safety Report 5195812-3 (Version None)
Quarter: 2006Q4

REPORT INFORMATION
  Report Type: 
  Country: None (occurrence: None)
  Receive Date: 20061227
  Receipt Date: 20061220
  Transmission Date: 20070319
  Serious: Yes (Other)
  Sender: FDA-Public Use
  Company Number: 233766

PATIENT
  Age: 48 Year
  Sex: Female

DRUGS (11)
  1. XOLAIR [Suspect]
     Indication: ASTHMA
     Dosage: 300 MG, Q4W, SUBCUTANEOUS
     Route: 058
     Dates: start: 20061208
  2. MEDROL [Concomitant]
  3. KLONOPIN [Concomitant]
  4. AMITRIPTYLINE HCL [Concomitant]
  5. PRILOSEC [Concomitant]
  6. ZYRTEC [Concomitant]
  7. MYLICON (SIMETHICONE) [Concomitant]
  8. ALBUTEROL INHALER (ALBUTEROL/ALBUTEROL SULFATE) [Concomitant]
  9. ALBUTEROL NEBULIZER (ALBUTEROL/ALBUTEROL SULFATE) [Concomitant]
  10. MUCINEX [Concomitant]
  11. PHENERGAN VC WITH CODEINE (CODEINE PHOSPHATE, PHENYLEPHRINE HYDROCHLOR [Concomitant]

REACTIONS (1)
  - HYPERSENSITIVITY [None]
